FAERS Safety Report 5112799-X (Version None)
Quarter: 2006Q3

REPORT INFORMATION
  Report Type: 
  Country: None (occurrence: None)
  Receive Date: 20060922
  Receipt Date: 20060918
  Transmission Date: 20061208
  Serious: Yes (Other)
  Sender: FDA-Public Use
  Company Number: AU-MERCK-0609AUS00119

PATIENT
  Age: 75 Year
  Sex: Female

DRUGS (2)
  1. ZETIA [Suspect]
     Route: 065
  2. METOPROLOL TARTRATE [Suspect]
     Route: 065

REACTIONS (3)
  - ASTHENIA [None]
  - DYSPHASIA [None]
  - MUSCLE SPASMS [None]
